FAERS Safety Report 7149693-9 (Version None)
Quarter: 2010Q4

REPORT INFORMATION
  Report Type: 
  Country: None (occurrence: None)
  Receive Date: 20101209
  Receipt Date: 20101203
  Transmission Date: 20110411
  Serious: Yes (Death, Hospitalization)
  Sender: FDA-Public Use
  Company Number: US-ELI_LILLY_AND_COMPANY-US201011007707

PATIENT
  Sex: Female
  Weight: 52.9 kg

DRUGS (13)
  1. CETUXIMAB [Suspect]
     Indication: NON-SMALL CELL LUNG CANCER
     Dosage: 380 MG, OTHER
     Route: 042
     Dates: start: 20100820, end: 20101101
  2. PEMETREXED [Suspect]
     Indication: NON-SMALL CELL LUNG CANCER
     Dosage: 570 MG, OTHER
     Route: 042
     Dates: start: 20100820, end: 20101025
  3. CARBOPLATIN [Suspect]
     Indication: NON-SMALL CELL LUNG CANCER
     Dosage: 522 MG, OTHER
     Route: 042
     Dates: start: 20100820, end: 20101025
  4. COUMADIN [Concomitant]
     Route: 048
     Dates: start: 20101122
  5. SENOKOT [Concomitant]
     Dosage: 2 D/F, EACH EVENING
     Route: 048
     Dates: start: 20101121
  6. PRILOSEC [Concomitant]
     Dosage: 40 MG, 2/D
     Route: 048
     Dates: start: 20101121
  7. AMBIEN [Concomitant]
     Dosage: 5 MG, EACH EVENING
     Route: 048
     Dates: start: 20101118
  8. CITALOPRAM [Concomitant]
     Dosage: 20 MG, DAILY (1/D)
     Route: 048
     Dates: start: 20101118
  9. SLOW-MAG [Concomitant]
     Dosage: 64 MG, DAILY (1/D)
     Route: 048
     Dates: start: 20101118
  10. ORAL CONTRACEPTIVE NOS [Concomitant]
     Route: 048
  11. OMEPRAZOLE [Concomitant]
     Dosage: 40 MG, OTHER
     Route: 048
  12. DILAUDID [Concomitant]
     Dosage: 0.5 MG, UNK
     Route: 042
  13. ONDANSETRON HYDROCHLORIDE [Concomitant]
     Dosage: 4 MG, EVERY 4 HRS

REACTIONS (3)
  - HAEMORRHAGE [None]
  - SUPERIOR VENA CAVAL OCCLUSION [None]
  - VENOUS THROMBOSIS [None]
